FAERS Safety Report 10201548 (Version 2)
Quarter: 2014Q2

REPORT INFORMATION
  Report Type: Report from Study
  Country: US (occurrence: US)
  Receive Date: 20140528
  Receipt Date: 20140602
  Transmission Date: 20141212
  Serious: Yes (Other)
  Sender: FDA-Public Use
  Company Number: US-BAXTER-2014BAX026535

PATIENT
  Age: 51 Year
  Sex: Female
  Weight: 77.3 kg

DRUGS (1)
  1. GAMMAGARD LIQUID [Suspect]
     Indication: PRIMARY IMMUNODEFICIENCY SYNDROME
     Route: 058
     Dates: start: 201104

REACTIONS (3)
  - Staphylococcal infection [Recovering/Resolving]
  - Malaise [Unknown]
  - Application site laceration [Recovering/Resolving]
